FAERS Safety Report 8502745-0 (Version None)
Quarter: 2012Q3

REPORT INFORMATION
  Report Type: 
  Country: None (occurrence: None)
  Receive Date: 20120711
  Receipt Date: 20120709
  Transmission Date: 20120928
  Serious: Yes (Other)
  Sender: FDA-Public Use
  Company Number: US-JNJFOC-20120609990

PATIENT

DRUGS (5)
  1. DOXORUBICIN HCL [Suspect]
     Indication: HEPATIC NEOPLASM MALIGNANT
     Route: 042
     Dates: start: 20080101
  2. GELFOAM [Suspect]
     Indication: HEPATIC NEOPLASM MALIGNANT
     Route: 065
  3. MITOMYCIN [Suspect]
     Indication: HEPATIC NEOPLASM MALIGNANT
     Route: 065
     Dates: start: 20080101
  4. CISPLATIN [Suspect]
     Indication: HEPATIC NEOPLASM MALIGNANT
     Route: 065
     Dates: start: 20080101
  5. ETHIODOL [Suspect]
     Indication: HEPATIC NEOPLASM MALIGNANT
     Route: 065

REACTIONS (2)
  - LIVER ABSCESS [None]
  - OFF LABEL USE [None]
